FAERS Safety Report 8380581-6 (Version None)
Quarter: 2012Q2

REPORT INFORMATION
  Report Type: 
  Country: None (occurrence: None)
  Receive Date: 20120523
  Receipt Date: 20120516
  Transmission Date: 20120825
  Serious: Yes (Death)
  Sender: FDA-Public Use
  Company Number: NO-ROCHE-1069822

PATIENT
  Sex: Male

DRUGS (7)
  1. METALYSE [Suspect]
     Indication: ACUTE MYOCARDIAL INFARCTION
     Dosage: AT 15.18
     Route: 042
     Dates: start: 20120420
  2. ENOXAPARIN SODIUM [Suspect]
     Indication: ACUTE MYOCARDIAL INFARCTION
     Dosage: AT 15.15
     Route: 042
     Dates: start: 20120420
  3. NITROGLYCERIN [Concomitant]
     Route: 065
  4. ASPIRIN [Suspect]
     Indication: ACUTE MYOCARDIAL INFARCTION
     Dosage: AT 15.10
     Route: 048
     Dates: start: 20120420
  5. PLAVIX [Suspect]
     Indication: ACUTE MYOCARDIAL INFARCTION
     Dosage: AT 15.20
     Route: 048
     Dates: start: 20120420
  6. ENOXAPARIN SODIUM [Suspect]
     Dosage: AT 15.25
     Route: 058
     Dates: start: 20120420
  7. MORPHINE [Concomitant]
     Indication: CHEST PAIN
     Route: 065

REACTIONS (1)
  - HAEMORRHAGE INTRACRANIAL [None]
